FAERS Safety Report 19525291 (Version 2)
Quarter: 2022Q1

REPORT INFORMATION
  Report Type: Other
  Country: US (occurrence: None)
  Receive Date: 20210712
  Receipt Date: 20220216
  Transmission Date: 20220423
  Serious: No
  Sender: FDA-Public Use
  Company Number: US-ROCHE-2867634

PATIENT
  Age: 42 Year
  Sex: Female
  Weight: 120 kg

DRUGS (2)
  1. OCREVUS [Suspect]
     Active Substance: OCRELIZUMAB
     Indication: Relapsing-remitting multiple sclerosis
     Dosage: 300MG IV INFUSION DAY 1 + 300MG IV INFUSION DAY 15, ONGOING NO?DOT: 22/APR/2019, 27/OCT/2020, 30/APR
     Route: 042
     Dates: start: 20180927, end: 20201027
  2. OCREVUS [Suspect]
     Active Substance: OCRELIZUMAB
     Dosage: 600MG IV EVERY 6 MONTHS
     Route: 042

REACTIONS (1)
  - COVID-19 [Recovered/Resolved]

NARRATIVE: CASE EVENT DATE: 20210501
